FAERS Safety Report 5267402-5 (Version None)
Quarter: 2007Q1

REPORT INFORMATION
  Report Type: 
  Country: None (occurrence: None)
  Receive Date: 20070316
  Receipt Date: 20070309
  Transmission Date: 20070707
  Serious: Yes (Death)
  Sender: FDA-Public Use
  Company Number: CA-ELI_LILLY_AND_COMPANY-CA200702005608

PATIENT
  Age: 49 Year
  Sex: Female
  Weight: 60 kg

DRUGS (11)
  1. XIGRIS [Suspect]
     Indication: SEPSIS
     Dosage: 14.4 UNK, UNK
     Route: 042
     Dates: start: 20070213
  2. CEFTRIAXONE [Concomitant]
  3. TAZOCIN [Concomitant]
  4. AVELOX [Concomitant]
  5. PEPCID /00706001/ [Concomitant]
  6. LEVOPHED [Concomitant]
  7. VASOPRESSIN [Concomitant]
  8. VANCOMYCIN HCL [Concomitant]
  9. INSULIN [Concomitant]
  10. MIDAZOLAM HCL [Concomitant]
  11. SOLU-MEDROL [Concomitant]

REACTIONS (1)
  - VENTRICULAR FIBRILLATION [None]
